FAERS Safety Report 7966788-8 (Version None)
Quarter: 2011Q4

REPORT INFORMATION
  Report Type: 
  Country: None (occurrence: None)
  Receive Date: 20111209
  Receipt Date: 20111206
  Transmission Date: 20120403
  Serious: No
  Sender: FDA-Public Use
  Company Number: US-BIOGENIDEC-2011BI046334

PATIENT
  Sex: Female

DRUGS (8)
  1. TYSABRI [Suspect]
     Indication: MULTIPLE SCLEROSIS
     Route: 042
     Dates: start: 20090908
  2. DIPHENHYDRAMINE HCL [Concomitant]
     Route: 048
  3. DIPHENHYDRAMINE HCL [Concomitant]
     Indication: ERYTHEMA
     Route: 048
  4. DIPHENHYDRAMINE HCL [Concomitant]
     Indication: URTICARIA
     Route: 048
  5. ACETAMINOPHEN [Concomitant]
     Route: 048
  6. DIPHENHYDRAMINE HCL [Concomitant]
     Indication: PRURITUS
     Route: 048
  7. ACETAMINOPHEN [Concomitant]
     Indication: HEADACHE
     Route: 048
  8. EPINEPHRINE [Concomitant]
     Indication: ANAPHYLACTIC REACTION

REACTIONS (2)
  - HYPERSENSITIVITY [None]
  - GENERAL SYMPTOM [None]
